FAERS Safety Report 7701052-3 (Version None)
Quarter: 2011Q3

REPORT INFORMATION
  Report Type: 
  Country: None (occurrence: None)
  Receive Date: 20110822
  Receipt Date: 20110809
  Transmission Date: 20111222
  Serious: No
  Sender: FDA-Public Use
  Company Number: US-B.I. PHARMACEUTICALS,INC./RIDGEFIELD-2011-BP-19478BP

PATIENT
  Sex: Male

DRUGS (2)
  1. PREDNISONE [Concomitant]
     Indication: RHEUMATOID ARTHRITIS
  2. MOBIC [Suspect]
     Indication: RHEUMATOID ARTHRITIS

REACTIONS (1)
  - DRUG INEFFECTIVE [None]
